FAERS Safety Report 12243721 (Version 1)
Quarter: 2016Q2

REPORT INFORMATION
  Report Type: Other
  Country: GB (occurrence: GB)
  Receive Date: 20160406
  Receipt Date: 20160406
  Transmission Date: 20160815
  Serious: Yes (Other)
  Sender: FDA-Public Use
  Company Number: GB-MYLANLABS-2016M1014229

PATIENT

DRUGS (2)
  1. CIPROFLOXACIN. [Suspect]
     Active Substance: CIPROFLOXACIN
     Indication: PROSTATITIS
     Dosage: 500 MG, UNK
     Route: 048
     Dates: start: 20100201
  2. ASPIRIN                            /00002701/ [Suspect]
     Active Substance: ASPIRIN
     Dosage: 300 MG, QD
     Route: 048
     Dates: start: 20130101

REACTIONS (5)
  - Therapeutic response unexpected [Unknown]
  - Painful erection [Recovered/Resolved]
  - Testicular hypertrophy [Recovered/Resolved]
  - Hair growth abnormal [Recovered/Resolved]
  - Scrotal disorder [Recovered/Resolved]
